FAERS Safety Report 20803930 (Version 1)
Quarter: 2022Q2

REPORT INFORMATION
  Report Type: Spontaneous
  Country: ES (occurrence: ES)
  Receive Date: 20220509
  Receipt Date: 20220509
  Transmission Date: 20220721
  Serious: Yes (Other)
  Sender: FDA-Public Use
  Company Number: ES-Fresenius Kabi-FK202205277

PATIENT
  Age: 80 Year
  Sex: Female

DRUGS (3)
  1. LIDOCAINE [Suspect]
     Active Substance: LIDOCAINE
     Indication: Anaesthesia procedure
     Dosage: 6 ML OF A MIXTURE OF LIDOCAINE 1 PERCENT, BUPIVACAINE 0.5 PERCENT AND HYALURONIDASE 150 IU
  2. BUPIVACAINE [Suspect]
     Active Substance: BUPIVACAINE
     Indication: Anaesthesia procedure
     Dosage: 6 ML OF A MIXTURE OF LIDOCAINE 1 PERCENT, BUPIVACAINE 0.5 PERCENT AND HYALURONIDASE 150 IU
  3. HYALURONIDASE [Suspect]
     Active Substance: HYALURONIDASE
     Indication: Anaesthesia procedure
     Dosage: 6 ML OF A MIXTURE OF LIDOCAINE 1 PERCENT, BUPIVACAINE 0.5 PERCENT AND HYALURONIDASE 150 IU

REACTIONS (2)
  - Acute macular neuroretinopathy [Recovered/Resolved with Sequelae]
  - Retinal artery occlusion [Recovered/Resolved with Sequelae]
